FAERS Safety Report 12196680 (Version 3)
Quarter: 2016Q3

REPORT INFORMATION
  Report Type: Report from Study
  Country: CO (occurrence: CO)
  Receive Date: 20160321
  Receipt Date: 20160815
  Transmission Date: 20161109
  Serious: Yes (Hospitalization)
  Sender: FDA-Public Use
  Company Number: CO-BIOGEN-2015BI129805

PATIENT
  Sex: Female
  Weight: 64 kg

DRUGS (3)
  1. AVONEX [Suspect]
     Active Substance: INTERFERON BETA-1A
     Route: 030
  2. AVONEX [Suspect]
     Active Substance: INTERFERON BETA-1A
     Indication: PRODUCT USED FOR UNKNOWN INDICATION
     Route: 030
     Dates: end: 20160412
  3. LYRICA [Concomitant]
     Active Substance: PREGABALIN
     Indication: PAIN
     Route: 065

REACTIONS (12)
  - Odynophagia [Unknown]
  - Pyrexia [Recovered/Resolved]
  - Arthralgia [Not Recovered/Not Resolved]
  - Sensory loss [Unknown]
  - Oral disorder [Unknown]
  - Mobility decreased [Unknown]
  - Malaise [Recovered/Resolved]
  - Headache [Not Recovered/Not Resolved]
  - Chills [Recovered/Resolved]
  - Neuromyelitis optica spectrum disorder [Not Recovered/Not Resolved]
  - Depression [Unknown]
  - Sensation of foreign body [Unknown]

NARRATIVE: CASE EVENT DATE: 20150911
